FAERS Safety Report 21950340 (Version 1)
Quarter: 2023Q1

REPORT INFORMATION
  Report Type: Spontaneous
  Country: FR (occurrence: FR)
  Receive Date: 20230203
  Receipt Date: 20230203
  Transmission Date: 20230417
  Serious: Yes (Hospitalization, Other)
  Sender: FDA-Public Use
  Company Number: None

PATIENT
  Age: 49 Year
  Sex: Male
  Weight: 98 kg

DRUGS (10)
  1. UMULINE [Suspect]
     Active Substance: INSULIN HUMAN
     Indication: Diabetes mellitus
     Dosage: UNK UNK, PRN (ACCORDING TO BLOOD GLUCOSE)
     Route: 042
     Dates: start: 20220113
  2. HEPARIN SODIUM [Suspect]
     Active Substance: HEPARIN SODIUM
     Indication: Thrombosis prophylaxis
     Dosage: 15000 INTERNATIONAL UNIT, DAILY
     Route: 042
     Dates: start: 20220116, end: 20220125
  3. HEPARIN SODIUM [Suspect]
     Active Substance: HEPARIN SODIUM
     Dosage: 10000 INTERNATIONAL UNIT, DAILY
     Route: 042
     Dates: start: 20220125, end: 20220126
  4. LOVENOX [Concomitant]
     Active Substance: ENOXAPARIN SODIUM
     Indication: Thrombosis prophylaxis
     Dosage: 4000 INTERNATIONAL UNIT, DAILY
     Route: 058
     Dates: start: 20220112, end: 20220116
  5. TOCILIZUMAB [Concomitant]
     Active Substance: TOCILIZUMAB
     Indication: COVID-19 treatment
     Dosage: UNK
     Route: 042
  6. CISATRACURIUM [Concomitant]
     Active Substance: CISATRACURIUM
     Indication: Sedation
     Dosage: 20 MG, EVERY HOUR
     Route: 042
  7. PROPOFOL LIPURO [Concomitant]
     Active Substance: PROPOFOL
     Indication: Sedation
     Dosage: 100 MG, EVERY HOUR
     Route: 042
  8. SUFENTANIL CITRATE [Concomitant]
     Active Substance: SUFENTANIL CITRATE
     Indication: Sedation
     Dosage: 10 UG, EVERY HOUR
     Route: 042
  9. DEXAMETHASONE ACETATE [Concomitant]
     Active Substance: DEXAMETHASONE ACETATE
     Indication: COVID-19 treatment
     Dosage: 6 MG
     Route: 042
  10. LEVOTHYROXINE [Concomitant]
     Active Substance: LEVOTHYROXINE
     Indication: Hypothyroidism
     Dosage: 55 UG, DAILY
     Route: 042

REACTIONS (2)
  - Heparin-induced thrombocytopenia [Not Recovered/Not Resolved]
  - Incorrect route of product administration [Unknown]

NARRATIVE: CASE EVENT DATE: 20220121
